FAERS Safety Report 13854934 (Version 2)
Quarter: 2017Q3

REPORT INFORMATION
  Report Type: Spontaneous
  Country: FR (occurrence: FR)
  Receive Date: 20170810
  Receipt Date: 20170816
  Transmission Date: 20171127
  Serious: Yes (Hospitalization, Other)
  Sender: FDA-Public Use
  Company Number: FR-ASTRAZENECA-2017SE79125

PATIENT
  Age: 22204 Day
  Sex: Male

DRUGS (9)
  1. EPOETIN ALFA [Concomitant]
     Active Substance: ERYTHROPOIETIN
     Dosage: 20000 UI / 0.5 ML
     Dates: start: 20170608
  2. INEXIUM [Suspect]
     Active Substance: ESOMEPRAZOLE
     Indication: PRODUCT USED FOR UNKNOWN INDICATION
     Dosage: 20.0MG UNKNOWN
     Route: 048
     Dates: start: 2015, end: 20170712
  3. FLUOROURACIL. [Suspect]
     Active Substance: FLUOROURACIL
     Indication: OESOPHAGEAL ADENOCARCINOMA
     Dosage: FOLFIRI, 50MG/ML ( PFIZER)
     Route: 042
     Dates: start: 20170622
  4. FOLINIC ACID [Concomitant]
     Active Substance: LEUCOVORIN
     Dates: start: 20170608
  5. DIFFU K [Concomitant]
     Active Substance: POTASSIUM CHLORIDE
     Route: 048
  6. IRINOTECAN HYDROCHLORIDE. [Suspect]
     Active Substance: IRINOTECAN HYDROCHLORIDE
     Indication: OESOPHAGEAL ADENOCARCINOMA
     Dosage: FOLFIRI, 20MG/ML
     Route: 042
     Dates: start: 20170622
  7. SPIRIVA [Concomitant]
     Active Substance: TIOTROPIUM BROMIDE MONOHYDRATE
     Route: 055
  8. FLUOROURACIL. [Suspect]
     Active Substance: FLUOROURACIL
     Indication: OESOPHAGEAL ADENOCARCINOMA
     Dosage: FOLFIRI, 50MG/ML ( PFIZER)
     Route: 042
     Dates: start: 20170608
  9. IRINOTECAN HYDROCHLORIDE. [Suspect]
     Active Substance: IRINOTECAN HYDROCHLORIDE
     Indication: OESOPHAGEAL ADENOCARCINOMA
     Dosage: FOLFIRI, 20MG/ML
     Route: 042
     Dates: start: 20170608

REACTIONS (3)
  - Myelodysplastic syndrome [Unknown]
  - Second primary malignancy [Unknown]
  - Pancytopenia [Recovered/Resolved]

NARRATIVE: CASE EVENT DATE: 20170704
